FAERS Safety Report 9452928 (Version 2)
Quarter: 2013Q4

REPORT INFORMATION
  Report Type: Spontaneous
  Country: US (occurrence: US)
  Receive Date: 20130812
  Receipt Date: 20131028
  Transmission Date: 20140711
  Serious: No
  Sender: FDA-Public Use
  Company Number: US-ROXANE LABORATORIES, INC.-2013-RO-01322RO

PATIENT
  Sex: Female

DRUGS (1)
  1. FLUTICASONE [Suspect]
     Indication: MULTIPLE ALLERGIES
     Route: 045
     Dates: start: 20130727, end: 20130727

REACTIONS (6)
  - Hypersensitivity [Recovered/Resolved]
  - Nasal discomfort [Recovered/Resolved]
  - Sneezing [Recovered/Resolved]
  - Lung disorder [Recovered/Resolved]
  - Abdominal pain upper [Recovered/Resolved]
  - Product quality issue [Unknown]
